FAERS Safety Report 11821960 (Version 1)
Quarter: 2015Q4

REPORT INFORMATION
  Report Type: Spontaneous
  Country: US (occurrence: US)
  Receive Date: 20151210
  Receipt Date: 20151210
  Transmission Date: 20160305
  Serious: No
  Sender: FDA-Public Use
  Company Number: US-JNJFOC-20150807110

PATIENT
  Sex: Male

DRUGS (11)
  1. JANUVIA [Concomitant]
     Active Substance: SITAGLIPTIN PHOSPHATE
  2. GABAPENTIN. [Concomitant]
     Active Substance: GABAPENTIN
  3. NORCO [Concomitant]
     Active Substance: ACETAMINOPHEN\HYDROCODONE BITARTRATE
  4. METFORMIN [Concomitant]
     Active Substance: METFORMIN HYDROCHLORIDE
  5. IMBRUVICA [Suspect]
     Active Substance: IBRUTINIB
     Indication: NON-HODGKIN^S LYMPHOMA
     Route: 048
     Dates: start: 20140904
  6. ATENOLOL. [Concomitant]
     Active Substance: ATENOLOL
  7. ACETYLSALICYLIC ACID [Concomitant]
     Active Substance: ASPIRIN
  8. IMBRUVICA [Suspect]
     Active Substance: IBRUTINIB
     Indication: NON-HODGKIN^S LYMPHOMA
     Route: 048
  9. LEVOTHYROXINE. [Concomitant]
     Active Substance: LEVOTHYROXINE
  10. CELEXA [Concomitant]
     Active Substance: CITALOPRAM HYDROBROMIDE
  11. GEMFIBROZIL. [Concomitant]
     Active Substance: GEMFIBROZIL

REACTIONS (4)
  - Weight increased [Unknown]
  - Dyspnoea [Unknown]
  - Pain [Not Recovered/Not Resolved]
  - Fluid retention [Not Recovered/Not Resolved]
